FAERS Safety Report 23293587 (Version 2)
Quarter: 2024Q1

REPORT INFORMATION
  Report Type: Report from Study
  Country: US (occurrence: US)
  Receive Date: 20231213
  Receipt Date: 20240314
  Transmission Date: 20240410
  Serious: Yes (Other)
  Sender: FDA-Public Use
  Company Number: US-ARGENX-2023-ARGX-US002423AA

PATIENT

DRUGS (3)
  1. VYVGART [Suspect]
     Active Substance: EFGARTIGIMOD ALFA-FCAB
     Indication: Myasthenia gravis
     Dosage: 10 MG/KG
     Route: 042
     Dates: start: 20230307
  2. VYVGART [Suspect]
     Active Substance: EFGARTIGIMOD ALFA-FCAB
     Dosage: 10 MG/KG
     Route: 042
     Dates: start: 20231023
  3. VYVGART [Suspect]
     Active Substance: EFGARTIGIMOD ALFA-FCAB
     Dosage: 10 MG/KG
     Route: 042
     Dates: start: 20230703

REACTIONS (11)
  - Spinal fusion surgery [Recovered/Resolved]
  - Myasthenia gravis [Unknown]
  - Temperature intolerance [Recovering/Resolving]
  - Myasthenia gravis [Recovering/Resolving]
  - Nystagmus [Recovered/Resolved]
  - Diplopia [Recovered/Resolved]
  - Myasthenia gravis [Unknown]
  - Muscular weakness [Unknown]
  - Strabismus [Unknown]
  - COVID-19 [Unknown]
  - Post procedural infection [Unknown]

NARRATIVE: CASE EVENT DATE: 20231210
